FAERS Safety Report 9005343 (Version 1)
Quarter: 2013Q1

REPORT INFORMATION
  Report Type: Report from Study
  Country: CA (occurrence: CA)
  Receive Date: 20130108
  Receipt Date: 20130108
  Transmission Date: 20140127
  Serious: Yes (Other)
  Sender: FDA-Public Use
  Company Number: CA-BAYER-2013-002318

PATIENT
  Age: 42 Year
  Sex: Female

DRUGS (2)
  1. MIRENA [Suspect]
     Indication: CONTRACEPTION
     Dosage: 20 MCG/24HR, CONT
     Route: 015
     Dates: start: 201212, end: 20130106
  2. MIRENA [Suspect]
     Indication: DYSMENORRHOEA

REACTIONS (2)
  - Post abortion complication [Recovered/Resolved]
  - Device dislocation [Recovered/Resolved]
